FAERS Safety Report 7005510-9 (Version None)
Quarter: 2010Q3

REPORT INFORMATION
  Report Type: 
  Country: None (occurrence: None)
  Receive Date: 20100921
  Receipt Date: 20100909
  Transmission Date: 20110219
  Serious: Yes (Hospitalization, Other)
  Sender: FDA-Public Use
  Company Number: JP-SANOFI-AVENTIS-2010SA047582

PATIENT
  Age: 41 Year
  Sex: Female
  Weight: 54.2 kg

DRUGS (11)
  1. OXALIPLATIN [Suspect]
     Indication: RECTAL CANCER METASTATIC
     Route: 041
     Dates: start: 20080819, end: 20080819
  2. OXALIPLATIN [Suspect]
     Route: 041
     Dates: start: 20081002, end: 20081002
  3. CALCIUM LEVOFOLINATE [Suspect]
     Indication: RECTAL CANCER METASTATIC
     Route: 041
     Dates: start: 20080819, end: 20080819
  4. CALCIUM LEVOFOLINATE [Suspect]
     Route: 041
     Dates: start: 20100614, end: 20100614
  5. FLUOROURACIL [Suspect]
     Indication: RECTAL CANCER METASTATIC
     Route: 042
     Dates: start: 20080819, end: 20080819
  6. FLUOROURACIL [Suspect]
     Route: 042
     Dates: start: 20100614, end: 20100614
  7. AVASTIN [Suspect]
     Indication: RECTAL CANCER METASTATIC
     Route: 041
     Dates: start: 20081002, end: 20081002
  8. AVASTIN [Suspect]
     Route: 041
     Dates: start: 20100614, end: 20100614
  9. XELODA [Concomitant]
     Dates: start: 20090107, end: 20090723
  10. LANSOPRAZOLE [Concomitant]
     Dates: start: 20081215, end: 20081221
  11. PYDOXAL [Concomitant]
     Dates: start: 20090107

REACTIONS (5)
  - BLOOD PRESSURE INCREASED [None]
  - DECREASED APPETITE [None]
  - LEUKOENCEPHALOPATHY [None]
  - OVARIAN HAEMORRHAGE [None]
  - OVARIAN TORSION [None]
